FAERS Safety Report 4916076-9 (Version None)
Quarter: 2006Q1

REPORT INFORMATION
  Report Type: 
  Country: None (occurrence: None)
  Receive Date: 20060214
  Receipt Date: 20060201
  Transmission Date: 20060701
  Serious: Yes (Other)
  Sender: FDA-Public Use
  Company Number: 2006BI001984

PATIENT
  Sex: Male

DRUGS (4)
  1. ZEVALIN [Suspect]
     Indication: NEOPLASM MALIGNANT
     Dosage: 1X; IV
     Route: 042
     Dates: start: 20060125, end: 20060125
  2. ZEVALIN [Suspect]
     Indication: NEOPLASM MALIGNANT
     Dosage: 1X; IV
     Route: 042
     Dates: start: 20060201, end: 20060201
  3. RITUXIMAB [Concomitant]
  4. RITUXIMAB [Concomitant]

REACTIONS (12)
  - BACK PAIN [None]
  - BRADYCARDIA [None]
  - CHEST DISCOMFORT [None]
  - DIZZINESS [None]
  - DRY THROAT [None]
  - DYSPNOEA [None]
  - GAIT DISTURBANCE [None]
  - HYPOVENTILATION [None]
  - PULSE ABSENT [None]
  - THROAT TIGHTNESS [None]
  - TREMOR [None]
  - URINARY INCONTINENCE [None]
